FAERS Safety Report 17621482 (Version 1)
Quarter: 2020Q2

REPORT INFORMATION
  Report Type: Spontaneous
  Country: US (occurrence: US)
  Receive Date: 20200403
  Receipt Date: 20200403
  Transmission Date: 20200713
  Serious: No
  Sender: FDA-Public Use
  Company Number: US-JNJFOC-20200401106

PATIENT
  Age: 65 Year
  Sex: Female
  Weight: 70.82 kg

DRUGS (2)
  1. STELARA [Suspect]
     Active Substance: USTEKINUMAB
     Indication: PSORIATIC ARTHROPATHY
     Dosage: NEXT DOSE AT 8 WEEKS INSTEAD OF 12 WEEKS, THEN RETURN TO REGULAR SCHEDULE
     Route: 058
     Dates: start: 201909
  2. STELARA [Suspect]
     Active Substance: USTEKINUMAB

REACTIONS (4)
  - Product dose omission [Unknown]
  - Off label use [Unknown]
  - Device malfunction [Unknown]
  - Inappropriate schedule of product administration [Unknown]

NARRATIVE: CASE EVENT DATE: 20200329
